FAERS Safety Report 9214957 (Version 1)
Quarter: 2013Q2

REPORT INFORMATION
  Report Type: Spontaneous
  Country: US (occurrence: US)
  Receive Date: 20130405
  Receipt Date: 20130405
  Transmission Date: 20140414
  Serious: Yes (Other)
  Sender: FDA-Public Use
  Company Number: CHPA2013US005629

PATIENT
  Age: 66 Year
  Sex: Female

DRUGS (4)
  1. EXCEDRIN UNKNOWN [Suspect]
     Dosage: UNK
     Dates: start: 1985, end: 1985
  2. EXCEDRIN TENSION HEADACHE [Suspect]
     Indication: MIGRAINE
     Dosage: 2 CAPLETS, PRN
     Route: 048
     Dates: start: 1985
  3. NAPROXEN [Concomitant]
     Dosage: UNK
     Dates: start: 1985, end: 1986
  4. ASPIRIN [Concomitant]
     Indication: ROUTINE HEALTH MAINTENANCE
     Dosage: 3 TIMES PER WEEK

REACTIONS (2)
  - Abdominal discomfort [Recovered/Resolved]
  - Ulcer [Recovered/Resolved]
